FAERS Safety Report 11132732 (Version 1)
Quarter: 2015Q2

REPORT INFORMATION
  Report Type: Report from Study
  Country: US (occurrence: US)
  Receive Date: 20150522
  Receipt Date: 20150522
  Transmission Date: 20150821
  Serious: Yes (Hospitalization)
  Sender: FDA-Public Use
  Company Number: PHHO2015US008787

PATIENT
  Age: 70 Year
  Sex: Male

DRUGS (2)
  1. AFINITOR [Suspect]
     Active Substance: EVEROLIMUS
     Indication: PLASMA CELL MYELOMA
     Route: 065
  2. SORAFENIB [Concomitant]
     Active Substance: SORAFENIB
     Indication: PLASMA CELL MYELOMA
     Route: 065

REACTIONS (4)
  - Hypothermia [Unknown]
  - Bradycardia [Unknown]
  - Hypotension [Unknown]
  - Sepsis [Unknown]
